FAERS Safety Report 24995166 (Version 1)
Quarter: 2025Q1

REPORT INFORMATION
  Report Type: Report from Study
  Country: US (occurrence: US)
  Receive Date: 20250221
  Receipt Date: 20250221
  Transmission Date: 20250409
  Serious: Yes (Other)
  Sender: GILEAD
  Company Number: US-GILEAD-2025-0704040

PATIENT
  Sex: Female

DRUGS (24)
  1. AZTREONAM LYSINE [Suspect]
     Active Substance: AZTREONAM LYSINE
     Indication: Cystic fibrosis
     Dosage: INHALE 1 VIAL (75 MG) 3 TIMES A DAY, CYCLE 28 DAYS ON AND 28 DAYS OFF
     Route: 055
     Dates: start: 2021
  2. ALBUTEROL SULFATE\IPRATROPIUM BROMIDE [Concomitant]
     Active Substance: ALBUTEROL SULFATE\IPRATROPIUM BROMIDE
  3. PULMICORT TURBUHALER [Concomitant]
     Active Substance: BUDESONIDE
  4. CELECOXIB [Concomitant]
     Active Substance: CELECOXIB
  5. SPIRIVA [Concomitant]
     Active Substance: TIOTROPIUM BROMIDE MONOHYDRATE
  6. PERFOROMIST [Concomitant]
     Active Substance: FORMOTEROL FUMARATE DIHYDRATE
  7. SODIUM CHLORIDE [Concomitant]
     Active Substance: SODIUM CHLORIDE
  8. TRIKAFTA [Concomitant]
     Active Substance: ELEXACAFTOR\IVACAFTOR\TEZACAFTOR
  9. BACTRIM DS [Concomitant]
     Active Substance: SULFAMETHOXAZOLE\TRIMETHOPRIM
  10. HUMALOG [Concomitant]
     Active Substance: INSULIN LISPRO
  11. SINGULAIR [Concomitant]
     Active Substance: MONTELUKAST SODIUM
  12. LANTUS SOLOSTAR [Concomitant]
     Active Substance: INSULIN GLARGINE
  13. METOCLOPRAMIDE HYDROCHLORIDE [Concomitant]
     Active Substance: METOCLOPRAMIDE HYDROCHLORIDE
  14. ALBUTEROL SULFATE [Concomitant]
     Active Substance: ALBUTEROL SULFATE
  15. IRON [Concomitant]
     Active Substance: IRON
  16. CARBAMAZEPINE [Concomitant]
     Active Substance: CARBAMAZEPINE
  17. LOSARTAN POTASSIUM [Concomitant]
     Active Substance: LOSARTAN POTASSIUM
  18. ALLEGRA ALLERGY [Concomitant]
     Active Substance: FEXOFENADINE HYDROCHLORIDE
  19. BUPROPION HYDROCHLORIDE [Concomitant]
     Active Substance: BUPROPION HYDROCHLORIDE
  20. PANCREAZE [AMYLASE;LIPASE;PROTEASE NOS] [Concomitant]
  21. AMITIZA [Concomitant]
     Active Substance: LUBIPROSTONE
  22. PREVACID [Concomitant]
     Active Substance: LANSOPRAZOLE
  23. DAILY VITE [COLECALCIFEROL;CYANOCOBALAMIN;ERGOCALCIFEROL;NICOTINAMIDE; [Concomitant]
  24. OXYGEN [Concomitant]
     Active Substance: OXYGEN

REACTIONS (1)
  - Cystic fibrosis [Not Recovered/Not Resolved]
